FAERS Safety Report 6126177-8 (Version None)
Quarter: 2009Q1

REPORT INFORMATION
  Report Type: 
  Country: None (occurrence: None)
  Receive Date: 20090320
  Receipt Date: 20090312
  Transmission Date: 20090719
  Serious: Yes (Other)
  Sender: FDA-Public Use
  Company Number: B0559350A

PATIENT
  Age: 15 Year
  Sex: Female

DRUGS (2)
  1. LAMICTAL [Suspect]
     Dosage: 150MG TWICE PER DAY
     Route: 048
  2. DEPAKENE [Suspect]
     Dosage: 250MG PER DAY
     Route: 048
     Dates: start: 20090101

REACTIONS (4)
  - DIPLOPIA [None]
  - DRUG INTERACTION [None]
  - EPILEPSY [None]
  - MYDRIASIS [None]
